FAERS Safety Report 25708881 (Version 1)
Quarter: 2025Q3

REPORT INFORMATION
  Report Type: Spontaneous
  Country: TR (occurrence: TR)
  Receive Date: 20250821
  Receipt Date: 20250821
  Transmission Date: 20251020
  Serious: Yes (Hospitalization)
  Sender: PRECISION DOSE, INC.
  Company Number: TR-PRECISION DOSE, INC.-2025PRD00009

PATIENT
  Age: 17 Year
  Sex: Female

DRUGS (1)
  1. DOXYCYCLINE [Suspect]
     Active Substance: DOXYCYCLINE
     Indication: Acne
     Dosage: 100 MG, 1X/DAY

REACTIONS (1)
  - Oesophagitis [Recovered/Resolved]
